FAERS Safety Report 6399065-X (Version None)
Quarter: 2009Q4

REPORT INFORMATION
  Report Type: 
  Country: None (occurrence: None)
  Receive Date: 20091008
  Receipt Date: 20090921
  Transmission Date: 20100525
  Serious: Yes (Hospitalization, Other)
  Sender: FDA-Public Use
  Company Number: BVT-000322

PATIENT
  Age: 6 Year
  Sex: Female

DRUGS (4)
  1. KINERET [Suspect]
     Indication: JUVENILE ARTHRITIS
     Dosage: SEE IMAGE
     Route: 058
  2. PREDNISONE [Concomitant]
  3. METHYLPREDNISOLONE [Concomitant]
  4. METHOTREXATE SODIUM [Concomitant]

REACTIONS (4)
  - HYPOTENSION [None]
  - INJECTION SITE ERYTHEMA [None]
  - VIRAL INFECTION [None]
  - VOMITING [None]
